FAERS Safety Report 18634790 (Version 1)
Quarter: 2020Q4

REPORT INFORMATION
  Report Type: Spontaneous
  Country: US (occurrence: US)
  Receive Date: 20201218
  Receipt Date: 20201218
  Transmission Date: 20210114
  Serious: Yes (Hospitalization)
  Sender: FDA-Public Use
  Company Number: None

PATIENT
  Age: 60 Year
  Sex: Female

DRUGS (6)
  1. TOPIRAMATE. [Concomitant]
     Active Substance: TOPIRAMATE
  2. DICLOFENAC [Concomitant]
     Active Substance: DICLOFENAC
  3. TRIMETERANE [Concomitant]
  4. WIXELA INHUB [Concomitant]
     Active Substance: FLUTICASONE PROPIONATE\SALMETEROL XINAFOATE
  5. LIDOCAINE. [Concomitant]
     Active Substance: LIDOCAINE
  6. ESBRIET [Suspect]
     Active Substance: PIRFENIDONE
     Indication: IDIOPATHIC PULMONARY FIBROSIS
     Route: 048
     Dates: start: 20191009

REACTIONS (3)
  - Wrong schedule [None]
  - Lung disorder [None]
  - Incorrect dosage administered [None]

NARRATIVE: CASE EVENT DATE: 20201204
